FAERS Safety Report 24770355 (Version 1)
Quarter: 2024Q4

REPORT INFORMATION
  Report Type: Spontaneous
  Country: US (occurrence: None)
  Receive Date: 20241218
  Receipt Date: 20241218
  Transmission Date: 20250114
  Serious: Yes (Other)
  Sender: Public
  Company Number: None

PATIENT
  Age: 76 Year
  Sex: Male
  Weight: 86.18 kg

DRUGS (1)
  1. NEMLUVIO [Suspect]
     Active Substance: NEMOLIZUMAB-ILTO
     Indication: Neurodermatitis
     Dosage: FREQUENCY : MONTHLY;?
     Route: 058
     Dates: start: 20241127

REACTIONS (1)
  - Rash [None]

NARRATIVE: CASE EVENT DATE: 20241210
